FAERS Safety Report 8501404-8 (Version None)
Quarter: 2012Q3

REPORT INFORMATION
  Report Type: 
  Country: None (occurrence: None)
  Receive Date: 20120710
  Receipt Date: 20120630
  Transmission Date: 20120928
  Serious: Yes (Death, Other)
  Sender: FDA-Public Use
  Company Number: PH-BAXTER-2012BAX010432

PATIENT
  Sex: Female

DRUGS (1)
  1. DIANEAL PD-2 W/ DEXTROSE 2.5% [Suspect]
     Route: 033
     Dates: start: 20120613

REACTIONS (3)
  - CARDIAC ARREST [None]
  - BRAIN DEATH [None]
  - MULTI-ORGAN FAILURE [None]
